FAERS Safety Report 7012447-8 (Version None)
Quarter: 2010Q3

REPORT INFORMATION
  Report Type: 
  Country: None (occurrence: None)
  Receive Date: 20100924
  Receipt Date: 20100915
  Transmission Date: 20110219
  Serious: Yes (Hospitalization)
  Sender: FDA-Public Use
  Company Number: NL-SANOFI-AVENTIS-2010SA055233

PATIENT
  Age: 76 Year
  Sex: Male

DRUGS (11)
  1. CLEXANE [Suspect]
     Indication: PROPHYLAXIS
     Route: 065
     Dates: start: 20100814, end: 20100816
  2. LACTULOSE [Concomitant]
  3. ACETAMINOPHEN [Concomitant]
     Dosage: 6 TIMES PER DAYS
  4. GLUCAGEN [Concomitant]
  5. LANOXIN [Concomitant]
  6. ACENOCOUMAROL [Concomitant]
  7. NOVORAPID [Concomitant]
  8. INSULIN DETEMIR [Concomitant]
  9. DALTEPARIN SODIUM [Concomitant]
  10. SOTALOL [Concomitant]
  11. DITROPAN [Concomitant]

REACTIONS (3)
  - DIARRHOEA [None]
  - LOSS OF CONSCIOUSNESS [None]
  - MUSCLE CONTRACTIONS INVOLUNTARY [None]
